FAERS Safety Report 5310385-X (Version None)
Quarter: 2007Q2

REPORT INFORMATION
  Report Type: 
  Country: None (occurrence: None)
  Receive Date: 20070427
  Receipt Date: 20070417
  Transmission Date: 20071010
  Serious: Yes (Other)
  Sender: FDA-Public Use
  Company Number: US-ELI_LILLY_AND_COMPANY-US200704005470

PATIENT
  Sex: Male

DRUGS (3)
  1. HUMALOG [Suspect]
     Dosage: UNK, UNK
  2. HUMULIN N [Suspect]
  3. COREG [Concomitant]

REACTIONS (8)
  - BLOOD GLUCOSE DECREASED [None]
  - BOREDOM [None]
  - CARDIAC DISORDER [None]
  - DIABETIC ULCER [None]
  - GAIT DISTURBANCE [None]
  - HYPOTENSION [None]
  - MYOCARDIAL INFARCTION [None]
  - VENOUS INSUFFICIENCY [None]
